FAERS Safety Report 7412509-7 (Version None)
Quarter: 2011Q2

REPORT INFORMATION
  Report Type: 
  Country: None (occurrence: None)
  Receive Date: 20110413
  Receipt Date: 20110406
  Transmission Date: 20111010
  Serious: Yes (Life-Threatening, Other)
  Sender: FDA-Public Use
  Company Number: US-ELI_LILLY_AND_COMPANY-US201104002727

PATIENT
  Sex: Male

DRUGS (4)
  1. EFFIENT [Suspect]
     Indication: PERCUTANEOUS CORONARY INTERVENTION
     Dosage: 60 MG, AS LOADING DOSE
     Dates: start: 20110401, end: 20110401
  2. STATIN                             /00084401/ [Concomitant]
     Dosage: UNK
  3. ANGIOMAX [Concomitant]
     Indication: ANTICOAGULANT THERAPY
     Dosage: BOLUS BASED ON WEIGHT
     Route: 065
     Dates: start: 20110401, end: 20110401
  4. EFFIENT [Suspect]
     Dosage: 10 MG, UNKNOWN

REACTIONS (3)
  - CARDIAC ARREST [None]
  - VENTRICULAR TACHYCARDIA [None]
  - THROMBOSIS IN DEVICE [None]
